APPROVED DRUG PRODUCT: TEMOZOLOMIDE
Active Ingredient: TEMOZOLOMIDE
Strength: 180MG
Dosage Form/Route: CAPSULE;ORAL
Application: A201528 | Product #005 | TE Code: AB
Applicant: ACCORD HEALTHCARE INC
Approved: Feb 27, 2017 | RLD: No | RS: No | Type: RX